FAERS Safety Report 4550137-1 (Version None)
Quarter: 2005Q1

REPORT INFORMATION
  Report Type: 
  Country: None (occurrence: None)
  Receive Date: 20050107
  Receipt Date: 20050103
  Transmission Date: 20050727
  Serious: Yes (Death)
  Sender: FDA-Public Use
  Company Number: 2005UW00062

PATIENT
  Age: 63 Year
  Sex: Male

DRUGS (2)
  1. IRESSA [Suspect]
     Indication: LUNG NEOPLASM MALIGNANT
     Dates: start: 20041204
  2. COUMADIN [Concomitant]

REACTIONS (1)
  - PULMONARY EMBOLISM [None]
